FAERS Safety Report 6119888-1 (Version None)
Quarter: 2009Q1

REPORT INFORMATION
  Report Type: 
  Country: None (occurrence: None)
  Receive Date: 20090316
  Receipt Date: 20090305
  Transmission Date: 20090719
  Serious: Yes (Other)
  Sender: FDA-Public Use
  Company Number: CA-BRISTOL-MYERS SQUIBB COMPANY-14532600

PATIENT
  Age: 60 Year
  Sex: Male

DRUGS (11)
  1. ABATACEPT [Suspect]
     Indication: COLITIS ULCERATIVE
     Dosage: THERAPY ALSO TAKEN ON 10AUG07-18JUN08
     Route: 042
     Dates: start: 20070618, end: 20080808
  2. FERROUS SULFATE TAB [Concomitant]
     Dates: start: 20051228
  3. DIOVAN [Concomitant]
     Dates: start: 20070330
  4. VITAMIN B-12 [Concomitant]
     Dates: start: 20040101
  5. SYNTHROID [Concomitant]
     Dates: start: 20060925
  6. FLEXERIL [Concomitant]
     Dates: start: 20070119
  7. INSULIN [Concomitant]
     Dates: start: 20050720
  8. NEURONTIN [Concomitant]
     Dates: start: 20080323
  9. ACETAMINOPHEN [Concomitant]
     Dates: start: 20050101
  10. NORVASC [Concomitant]
     Dates: start: 20080408
  11. NOVO-QUININE [Concomitant]
     Dates: start: 20080803

REACTIONS (1)
  - CHRONIC MYELOID LEUKAEMIA [None]
